APPROVED DRUG PRODUCT: GADOTERATE MEGLUMINE
Active Ingredient: GADOTERATE MEGLUMINE
Strength: 37.69GM/100ML (376.9MG/ML)
Dosage Form/Route: SOLUTION;INTRAVENOUS
Application: A218073 | Product #005 | TE Code: AP
Applicant: HAINAN POLY PHARM CO LTD
Approved: Jun 17, 2024 | RLD: No | RS: No | Type: RX